FAERS Safety Report 12779128 (Version 3)
Quarter: 2017Q3

REPORT INFORMATION
  Report Type: Spontaneous
  Country: IN (occurrence: IN)
  Receive Date: 20160926
  Receipt Date: 20170817
  Transmission Date: 20171127
  Serious: No
  Sender: FDA-Public Use
  Company Number: IN-LUPIN PHARMACEUTICALS INC.-E2B_00006134

PATIENT
  Age: 52 Year
  Sex: Male

DRUGS (5)
  1. COMBUNEX [Suspect]
     Active Substance: ETHAMBUTOL\ISONIAZID
     Indication: TUBERCULOSIS
     Dosage: 1 DF,QD,
     Route: 048
     Dates: start: 20160904
  2. R-CIN [Suspect]
     Active Substance: RIFAMPIN
     Dosage: 1 DF,QD,
     Route: 048
     Dates: start: 20160904
  3. L-CIN [Suspect]
     Active Substance: LEVOFLOXACIN
     Indication: PRODUCT USED FOR UNKNOWN INDICATION
     Dosage: 1 DF,QD,
     Route: 048
     Dates: start: 20160901
  4. R-CIN [Suspect]
     Active Substance: RIFAMPIN
     Indication: TUBERCULOSIS
     Dosage: ONCE A DAY ON EMPTY STOMACH
     Route: 048
     Dates: start: 20160831
  5. PYZINA [Suspect]
     Active Substance: PYRAZINAMIDE
     Indication: TUBERCULOSIS
     Dosage: 1 DF,QD,
     Route: 048
     Dates: start: 20160904

REACTIONS (3)
  - Abdominal rigidity [Not Recovered/Not Resolved]
  - Vomiting [Recovered/Resolved]
  - Chromaturia [Unknown]

NARRATIVE: CASE EVENT DATE: 20160907
